FAERS Safety Report 15469081 (Version 1)
Quarter: 2018Q4

REPORT INFORMATION
  Report Type: Spontaneous
  Country: GR (occurrence: GR)
  Receive Date: 20181005
  Receipt Date: 20181005
  Transmission Date: 20190205
  Serious: Yes (Hospitalization, Other)
  Sender: FDA-Public Use
  Company Number: GR-GLAXOSMITHKLINE-GR2018177210

PATIENT
  Age: 72 Year

DRUGS (4)
  1. DICLOFENAC [Suspect]
     Active Substance: DICLOFENAC
     Indication: PRODUCT USED FOR UNKNOWN INDICATION
     Dosage: UNK
     Route: 065
  2. IRBESARTAN. [Suspect]
     Active Substance: IRBESARTAN
     Indication: CARDIAC FAILURE
     Dosage: 300 MG, DAILY
     Route: 065
  3. CARVEDILOL. [Suspect]
     Active Substance: CARVEDILOL
     Indication: CARDIAC FAILURE
     Dosage: 12.5 MG (6.25X2), DAILY
     Route: 065
  4. AMILORIDE HYDROCHLORIDE + FUROSEMIDE [Suspect]
     Active Substance: AMILORIDE HYDROCHLORIDE\FUROSEMIDE
     Indication: CARDIAC FAILURE
     Dosage: 1 DF, BID (40+5 MG)
     Route: 065

REACTIONS (3)
  - Electrocardiogram T wave peaked [Unknown]
  - Muscular weakness [Unknown]
  - Hyperkalaemia [Unknown]
